FAERS Safety Report 4885948-6 (Version None)
Quarter: 2006Q1

REPORT INFORMATION
  Report Type: 
  Country: None (occurrence: None)
  Receive Date: 20060117
  Receipt Date: 20060105
  Transmission Date: 20060701
  Serious: Yes (Hospitalization, Other)
  Sender: FDA-Public Use
  Company Number: 2005159219

PATIENT
  Age: 75 Year
  Sex: Female

DRUGS (5)
  1. ATORVASTATIN CALCIUM [Suspect]
     Indication: ILL-DEFINED DISORDER
     Dosage: ORAL
     Route: 048
     Dates: start: 20030101, end: 20050601
  2. SYNTHROID [Suspect]
     Indication: HYPOTHYROIDISM
  3. METFORMIN HCL [Concomitant]
  4. AVAPRO [Concomitant]
  5. ASAPHEN (ACETYLSALICYLIC ACID) [Concomitant]

REACTIONS (2)
  - POLYMYOSITIS [None]
  - RHABDOMYOLYSIS [None]
